FAERS Safety Report 9613379 (Version 2)
Quarter: 2013Q4

REPORT INFORMATION
  Report Type: Spontaneous
  Country: VE (occurrence: VE)
  Receive Date: 20131010
  Receipt Date: 20131022
  Transmission Date: 20140711
  Serious: Yes (Death, Other)
  Sender: FDA-Public Use
  Company Number: VE-PFIZER INC-2013290688

PATIENT
  Age: 66 Year
  Sex: Male

DRUGS (1)
  1. LIPITOR [Suspect]
     Dosage: UNK
     Route: 048

REACTIONS (2)
  - Cardio-respiratory arrest [Fatal]
  - Renal disorder [Not Recovered/Not Resolved]
